FAERS Safety Report 8593208 (Version 3)
Quarter: 2012Q4

REPORT INFORMATION
  Report Type: 
  Country: US (occurrence: US)
  Receive Date: 20120604
  Receipt Date: 20121105
  Transmission Date: 20130627
  Serious: No
  Sender: FDA-Public Use
  Company Number: US-PFIZER INC-2012129245

PATIENT
  Sex: Male

DRUGS (1)
  1. TIKOSYN [Suspect]
     Indication: ATRIAL FIBRILLATION
     Dosage: 250 ug, 2x/day
     Route: 048
     Dates: start: 201105

REACTIONS (10)
  - Incorrect dose administered [Unknown]
  - Feeling abnormal [Unknown]
  - Fatigue [Unknown]
  - Depression [Unknown]
  - Skin burning sensation [Unknown]
  - Headache [Unknown]
  - Hot flush [Unknown]
  - Constipation [Unknown]
  - Vision blurred [Unknown]
  - Rash [Not Recovered/Not Resolved]
